FAERS Safety Report 15800474 (Version 2)
Quarter: 2019Q1

REPORT INFORMATION
  Report Type: Spontaneous
  Country: US (occurrence: US)
  Receive Date: 20190108
  Receipt Date: 20190307
  Transmission Date: 20190417
  Serious: No
  Sender: FDA-Public Use
  Company Number: US-ASTRAZENECA-2018SF68450

PATIENT
  Age: 23341 Day
  Sex: Female
  Weight: 68 kg

DRUGS (4)
  1. BYDUREON [Suspect]
     Active Substance: EXENATIDE
     Indication: ADVERSE REACTION
     Route: 058
     Dates: start: 201811, end: 20181219
  2. BYDUREON [Suspect]
     Active Substance: EXENATIDE
     Indication: TYPE 2 DIABETES MELLITUS
     Route: 058
     Dates: start: 201811, end: 20181219
  3. BYDUREON [Suspect]
     Active Substance: EXENATIDE
     Indication: TYPE 2 DIABETES MELLITUS
     Route: 058
     Dates: start: 20181104
  4. BYDUREON [Suspect]
     Active Substance: EXENATIDE
     Indication: ADVERSE REACTION
     Route: 058
     Dates: start: 20181104

REACTIONS (2)
  - Injection site mass [Recovering/Resolving]
  - Injection site mass [Recovered/Resolved]

NARRATIVE: CASE EVENT DATE: 20181104
